FAERS Safety Report 20147779 (Version 1)
Quarter: 2021Q4

REPORT INFORMATION
  Report Type: Spontaneous
  Country: US (occurrence: US)
  Receive Date: 20211203
  Receipt Date: 20211203
  Transmission Date: 20220303
  Serious: Yes (Death, Life-Threatening, Other)
  Sender: FDA-Public Use
  Company Number: US-CELLTRION INC.-2021US016285

PATIENT

DRUGS (3)
  1. RITUXIMAB [Suspect]
     Active Substance: RITUXIMAB
     Indication: Cryoglobulinaemia
     Dosage: 375 MG/M2 (CYCLE, AND DOSE: 1ST, 1ST AND 2ND, 2ND, 3RD)
  2. CYCLOPHOSPHAMIDE [Concomitant]
     Active Substance: CYCLOPHOSPHAMIDE
     Indication: Cryoglobulinaemia
  3. IBRUTINIB [Concomitant]
     Active Substance: IBRUTINIB
     Indication: Cryoglobulinaemia

REACTIONS (5)
  - Cholecystitis acute [Fatal]
  - Acute kidney injury [Unknown]
  - Condition aggravated [Unknown]
  - Cryoglobulinaemia [Unknown]
  - Off label use [Unknown]
